FAERS Safety Report 10274600 (Version 1)
Quarter: 2014Q3

REPORT INFORMATION
  Report Type: Spontaneous
  Country: DK (occurrence: DE)
  Receive Date: 20140702
  Receipt Date: 20140702
  Transmission Date: 20150326
  Serious: Yes (Congenital Anomaly, Other)
  Sender: FDA-Public Use
  Company Number: DE-FRI-1000068662

PATIENT
  Age: 0 Year
  Sex: Male
  Weight: 2.2 kg

DRUGS (6)
  1. L-THYROXIN [Concomitant]
     Active Substance: LEVOTHYROXINE SODIUM
     Dosage: 100 MICROGRAMS
     Route: 064
     Dates: start: 20130502, end: 20140127
  2. IBUPROFEN LYSINATE [Concomitant]
     Active Substance: IBUPROFEN
     Route: 064
  3. RENNIE [Concomitant]
     Active Substance: MAGNESIUM CARBONATE
     Route: 064
     Dates: start: 20130502, end: 20140127
  4. OMEPRAZOL [Concomitant]
     Active Substance: OMEPRAZOLE
     Route: 064
  5. CITALOPRAM [Suspect]
     Active Substance: CITALOPRAM HYDROBROMIDE
     Dosage: 20 MG
     Route: 064
     Dates: start: 20130502, end: 20140127
  6. FOLIO FORTE [Concomitant]
     Active Substance: FOLIC ACID\VITAMINS
     Dosage: 0.8 MG
     Route: 064
     Dates: start: 20130502, end: 20140127

REACTIONS (5)
  - Foetal exposure during pregnancy [Not Recovered/Not Resolved]
  - Small for dates baby [Recovering/Resolving]
  - Low birth weight baby [Recovering/Resolving]
  - Neonatal behavioural syndrome [Recovered/Resolved]
  - Hypospadias [Not Recovered/Not Resolved]

NARRATIVE: CASE EVENT DATE: 20130502
